FAERS Safety Report 21938404 (Version 3)
Quarter: 2023Q4

REPORT INFORMATION
  Report Type: Spontaneous
  Country: US (occurrence: US)
  Receive Date: 20230201
  Receipt Date: 20231128
  Transmission Date: 20240110
  Serious: Yes (Death)
  Sender: FDA-Public Use
  Company Number: US-PFIZER INC-202300040101

PATIENT
  Age: 51 Year
  Sex: Female

DRUGS (1)
  1. ZIRABEV [Suspect]
     Active Substance: BEVACIZUMAB-BVZR
     Dosage: EVERY TWO WEEKS

REACTIONS (1)
  - Death [Fatal]

NARRATIVE: CASE EVENT DATE: 20221209
